FAERS Safety Report 7816852 (Version 4)
Quarter: 2012Q4

REPORT INFORMATION
  Report Type: 
  Country: CA (occurrence: CA)
  Receive Date: 20110217
  Receipt Date: 20120924
  Transmission Date: 20130627
  Serious: Yes (Other)
  Sender: FDA-Public Use
  Company Number: PHHY2011CA10716

PATIENT
  Sex: Female

DRUGS (3)
  1. ACLASTA [Suspect]
     Indication: OSTEOPOROSIS
     Route: 042
     Dates: start: 20100329
  2. ACLASTA [Suspect]
     Route: 042
     Dates: start: 20110408
  3. ACLASTA [Suspect]
     Route: 042
     Dates: start: 20120227

REACTIONS (6)
  - Cardiac valve disease [Unknown]
  - Hypertension [Unknown]
  - Injection site discomfort [Unknown]
  - Inappropriate schedule of drug administration [Unknown]
  - Hypoaesthesia [Unknown]
  - Back pain [Unknown]
